FAERS Safety Report 12722014 (Version 2)
Quarter: 2016Q3

REPORT INFORMATION
  Report Type: Spontaneous
  Country: US (occurrence: US)
  Receive Date: 20160907
  Receipt Date: 20160921
  Transmission Date: 20161109
  Serious: No
  Sender: FDA-Public Use
  Company Number: US-GLAXOSMITHKLINE-US2016128081

PATIENT
  Age: 64 Year
  Sex: Male

DRUGS (1)
  1. FLOVENT DISKUS [Suspect]
     Active Substance: FLUTICASONE PROPIONATE
     Indication: OESOPHAGEAL DISORDER
     Dosage: 2 PUFF(S), BID
     Route: 049
     Dates: start: 201606

REACTIONS (5)
  - Fungal infection [Recovered/Resolved]
  - Off label use [Unknown]
  - Incorrect route of drug administration [Unknown]
  - Product quality issue [Unknown]
  - Drug dose omission [Not Recovered/Not Resolved]

NARRATIVE: CASE EVENT DATE: 201606
